FAERS Safety Report 10581579 (Version 1)
Quarter: 2014Q4

REPORT INFORMATION
  Report Type: Spontaneous
  Country: US (occurrence: US)
  Receive Date: 20141113
  Receipt Date: 20141113
  Transmission Date: 20150529
  Serious: No
  Sender: FDA-Public Use
  Company Number: US-MYLANLABS-2014SP004512

PATIENT
  Age: 69 Year
  Sex: Male

DRUGS (5)
  1. ATROPINE [Suspect]
     Active Substance: ATROPINE
     Indication: DIARRHOEA
     Route: 048
     Dates: start: 20140719, end: 20140726
  2. FLUOROURACIL. [Suspect]
     Active Substance: FLUOROURACIL
     Indication: PRODUCT USED FOR UNKNOWN INDICATION
  3. DIPHENOXYLATE [Suspect]
     Active Substance: DIPHENOXYLATE
     Indication: DIARRHOEA
     Route: 048
     Dates: start: 20140719, end: 20140726
  4. FOLINIC ACID [Suspect]
     Active Substance: LEUCOVORIN
     Indication: PRODUCT USED FOR UNKNOWN INDICATION
  5. OXALIPLATIN. [Suspect]
     Active Substance: OXALIPLATIN
     Indication: PRODUCT USED FOR UNKNOWN INDICATION

REACTIONS (2)
  - Condition aggravated [Recovered/Resolved]
  - Diarrhoea [Recovered/Resolved]

NARRATIVE: CASE EVENT DATE: 20140719
